FAERS Safety Report 8838901 (Version 2)
Quarter: 2012Q4

REPORT INFORMATION
  Report Type: 
  Country: JP (occurrence: JP)
  Receive Date: 20121015
  Receipt Date: 20121101
  Transmission Date: 20130627
  Serious: Yes (Hospitalization, Other)
  Sender: FDA-Public Use
  Company Number: JP-AMGEN-JPNSP2012064995

PATIENT
  Age: 65 Year
  Sex: Male

DRUGS (6)
  1. ETANERCEPT [Suspect]
     Indication: RHEUMATOID ARTHRITIS
     Dosage: UNK
     Route: 058
     Dates: start: 200810
  2. METHOTREXATE SODIUM [Concomitant]
     Indication: RHEUMATOID ARTHRITIS
     Dosage: 8 mg, weekly
     Route: 048
     Dates: start: 2005, end: 201104
  3. BUCILLAMINE [Concomitant]
     Indication: RHEUMATOID ARTHRITIS
     Dosage: UNK UNK, UNK
     Route: 048
     Dates: start: 201204
  4. BUCILLAMINE [Concomitant]
     Dosage: UNK
     Route: 048
     Dates: start: 201204
  5. RHEUMATREX                         /00113801/ [Concomitant]
     Indication: RHEUMATOID ARTHRITIS
     Dosage: 8 mg, weekly
     Route: 048
     Dates: start: 2005, end: 201104
  6. RIMATIL [Concomitant]
     Indication: RHEUMATOID ARTHRITIS
     Dosage: UNK
     Route: 048
     Dates: start: 201204

REACTIONS (4)
  - Skin necrosis [Recovered/Resolved]
  - Decreased appetite [Unknown]
  - Malaise [Unknown]
  - Cellulitis [Recovered/Resolved]
